FAERS Safety Report 21135109 (Version 1)
Quarter: 2022Q3

REPORT INFORMATION
  Report Type: Spontaneous
  Country: US (occurrence: US)
  Receive Date: 20220727
  Receipt Date: 20220727
  Transmission Date: 20221026
  Serious: No
  Sender: FDA-Public Use
  Company Number: US-ENDO PHARMACEUTICALS INC-2021-012273

PATIENT
  Age: 75 Year
  Sex: Male
  Weight: 90.703 kg

DRUGS (9)
  1. EDEX [Suspect]
     Active Substance: ALPROSTADIL
     Indication: Product used for unknown indication
     Dosage: UNKNOWN, UNKNOWN (20MCG)
     Route: 065
     Dates: start: 20211005
  2. EDEX [Suspect]
     Active Substance: ALPROSTADIL
     Indication: Product used for unknown indication
     Dosage: UNKNOWN, UNKNOWN (20MCG)
     Route: 065
     Dates: start: 20211005
  3. EDEX [Suspect]
     Active Substance: ALPROSTADIL
     Indication: Product used for unknown indication
     Dosage: UNKNOWN, UNKNOWN (20MCG)
     Route: 065
     Dates: start: 20211005
  4. EDEX [Suspect]
     Active Substance: ALPROSTADIL
     Indication: Product used for unknown indication
     Dosage: UNKNOWN, UNKNOWN (20MCG)
     Route: 065
     Dates: start: 20211005
  5. INSULIN NOS [Concomitant]
     Active Substance: INSULIN NOS
     Indication: Product used for unknown indication
     Dosage: UNK UNKNOWN, BID
     Route: 065
  6. ASPIRIN [Concomitant]
     Active Substance: ASPIRIN
     Indication: Product used for unknown indication
     Dosage: UNK UNKNOWN, UNKNOWN
     Route: 065
  7. OTHER DRUGS USED IN DIABETES [Concomitant]
     Indication: Diabetes mellitus
     Dosage: UNK UNKNOWN, UNKNOWN
     Route: 065
  8. UNSPECIFIED INGREDIENT [Concomitant]
     Active Substance: UNSPECIFIED INGREDIENT
     Indication: Product used for unknown indication
     Dosage: UNK UNKNOWN, UNKNOWN
     Route: 065
  9. STOMACH PILL [Concomitant]
     Indication: Product used for unknown indication
     Dosage: UNK UNKNOWN, UNKNOWN
     Route: 065

REACTIONS (6)
  - Emotional distress [Unknown]
  - Burning sensation [Unknown]
  - Blood pressure abnormal [Unknown]
  - Drug effect less than expected [Unknown]
  - Wrong technique in product usage process [Unknown]
  - Device use error [Unknown]

NARRATIVE: CASE EVENT DATE: 20210101
